FAERS Safety Report 8720056 (Version 7)
Quarter: 2013Q4

REPORT INFORMATION
  Report Type: Spontaneous
  Country: US (occurrence: US)
  Receive Date: 20120813
  Receipt Date: 20131114
  Transmission Date: 20140711
  Serious: Yes (Hospitalization, Other)
  Sender: FDA-Public Use
  Company Number: US-009507513-1208USA000328

PATIENT
  Sex: Male

DRUGS (10)
  1. FOSAMAX [Suspect]
     Indication: OSTEOPENIA
     Dosage: 10 MG, QD
     Route: 048
  2. FOSAMAX [Suspect]
     Indication: RHEUMATOID ARTHRITIS
     Dosage: 70 MG, QW
     Route: 048
     Dates: end: 201008
  3. ALENDRONATE SODIUM [Suspect]
     Dosage: 70 MG, UNK
     Dates: start: 20080605
  4. CHOLECALCIFEROL [Concomitant]
     Dosage: 800 MG, BID
     Dates: start: 1990
  5. CALCIUM (UNSPECIFIED) [Concomitant]
     Dosage: 1200 MG, QD
     Dates: start: 1990
  6. CORTICOSTEROIDS (UNSPECIFIED) [Concomitant]
     Dosage: UNK
     Dates: start: 1990, end: 2012
  7. PLAVIX [Concomitant]
     Indication: CEREBROVASCULAR ACCIDENT
     Dosage: 75 MG, QD
     Dates: start: 1998
  8. METHOTREXATE [Concomitant]
     Indication: RHEUMATOID ARTHRITIS
     Dosage: 25 MG, QW
     Route: 058
  9. METHOTREXATE [Concomitant]
     Dosage: 2.5MG X 7 TABS QW
  10. PREDNISONE [Concomitant]
     Indication: RHEUMATOID ARTHRITIS
     Dosage: 5-10 MG QD

REACTIONS (73)
  - Intramedullary rod insertion [Unknown]
  - Internal fixation of fracture [Unknown]
  - Open reduction of fracture [Unknown]
  - Cerebrovascular accident [Unknown]
  - Femur fracture [Recovered/Resolved]
  - Fracture delayed union [Unknown]
  - Rib fracture [Unknown]
  - Foot fracture [Unknown]
  - Toe operation [Unknown]
  - Blood cholesterol increased [Unknown]
  - Herpes zoster [Unknown]
  - Furuncle [Unknown]
  - Tooth extraction [Unknown]
  - Loose tooth [Unknown]
  - Tooth loss [Unknown]
  - Toothache [Unknown]
  - Bone infarction [Unknown]
  - Hypertension [Unknown]
  - Osteoporosis [Unknown]
  - Pain [Not Recovered/Not Resolved]
  - Osteoarthritis [Unknown]
  - Foot fracture [Recovered/Resolved]
  - Fall [Unknown]
  - Fracture nonunion [Unknown]
  - Foot fracture [Unknown]
  - Transient ischaemic attack [Unknown]
  - Sleep apnoea syndrome [Unknown]
  - Depression [Unknown]
  - Scar [Unknown]
  - Haemorrhoids [Unknown]
  - Intraocular lens implant [Unknown]
  - Insomnia [Unknown]
  - Weight increased [Unknown]
  - Epistaxis [Unknown]
  - Nasal congestion [Unknown]
  - Spinal osteoarthritis [Unknown]
  - Chest pain [Unknown]
  - Fibromyalgia [Unknown]
  - Colon adenoma [Unknown]
  - Foot operation [Unknown]
  - Foot deformity [Unknown]
  - Osteoarthritis [Unknown]
  - Foot fracture [Recovering/Resolving]
  - Fracture nonunion [Recovered/Resolved]
  - Autologous bone marrow transplantation therapy [Unknown]
  - Tendon sheath incision [Unknown]
  - Rheumatoid arthritis [Unknown]
  - Traumatic arthritis [Unknown]
  - Osteoarthritis [Unknown]
  - Trigger finger [Unknown]
  - Coronary artery disease [Unknown]
  - Coronary artery stenosis [Unknown]
  - Neuritis [Unknown]
  - Spinal osteoarthritis [Unknown]
  - Hiatus hernia [Unknown]
  - Cervical radiculopathy [Unknown]
  - Large intestine polyp [Unknown]
  - Enchondroma [Unknown]
  - Vertigo positional [Unknown]
  - Arrhythmia [Unknown]
  - Bunion operation [Unknown]
  - Rib fracture [Unknown]
  - Pulmonary fibrosis [Not Recovered/Not Resolved]
  - Atelectasis [Unknown]
  - Vitamin D deficiency [Unknown]
  - Calcium deficiency [Unknown]
  - Chronic obstructive pulmonary disease [Unknown]
  - Headache [Unknown]
  - Neck pain [Unknown]
  - Arthralgia [Unknown]
  - Dizziness [Unknown]
  - Gastrooesophageal reflux disease [Unknown]
  - Headache [Unknown]
